FAERS Safety Report 12232883 (Version 1)
Quarter: 2016Q2

REPORT INFORMATION
  Report Type: Spontaneous
  Country: US (occurrence: US)
  Receive Date: 20160402
  Receipt Date: 20160402
  Transmission Date: 20160815
  Serious: No
  Sender: FDA-Public Use
  Company Number: US-BRISTOL-MYERS SQUIBB COMPANY-BMS-2016-024303

PATIENT
  Sex: Male

DRUGS (1)
  1. DAKLINZA [Suspect]
     Active Substance: DACLATASVIR
     Indication: HEPATITIS C VIRUS TEST POSITIVE
     Route: 048

REACTIONS (3)
  - Fatigue [Unknown]
  - Dyspepsia [Unknown]
  - Nausea [Unknown]
